FAERS Safety Report 6179496-3 (Version None)
Quarter: 2009Q2

REPORT INFORMATION
  Report Type: 
  Country: None (occurrence: None)
  Receive Date: 20090505
  Receipt Date: 20090424
  Transmission Date: 20091009
  Serious: Yes (Other)
  Sender: FDA-Public Use
  Company Number: CH-ROCHE-629361

PATIENT
  Age: 50 Year
  Weight: 63 kg

DRUGS (5)
  1. CAPECITABINE [Suspect]
     Indication: DRUG USE FOR UNKNOWN INDICATION
     Route: 048
  2. CAPECITABINE [Suspect]
     Dosage: DOSAGE LOWERED
     Route: 048
     Dates: end: 20090401
  3. CARBOPLATIN [Concomitant]
     Dates: end: 20090401
  4. EPIRUBICIN [Concomitant]
     Dates: end: 20090401
  5. LYRICA [Concomitant]

REACTIONS (6)
  - DIARRHOEA [None]
  - NAUSEA [None]
  - NEOPLASM PROGRESSION [None]
  - NEUTROPENIA [None]
  - VOMITING [None]
  - WEIGHT DECREASED [None]
